FAERS Safety Report 5487737-0 (Version None)
Quarter: 2007Q3

REPORT INFORMATION
  Report Type: 
  Country: None (occurrence: None)
  Receive Date: 20070928
  Receipt Date: 20061023
  Transmission Date: 20080115
  Serious: Yes (Other)
  Sender: FDA-Public Use
  Company Number: 147700USA

PATIENT
  Sex: Male

DRUGS (5)
  1. ENALAPRIL MALEATE [Suspect]
  2. METFORMIN HCL [Concomitant]
  3. AMLODIPINE [Concomitant]
  4. CLOPIDOGREL [Concomitant]
  5. HYDROCHLOROTHIAZIDE [Concomitant]

REACTIONS (1)
  - SWOLLEN TONGUE [None]
